FAERS Safety Report 19974256 (Version 1)
Quarter: 2021Q4

REPORT INFORMATION
  Report Type: Spontaneous
  Country: PL (occurrence: PL)
  Receive Date: 20211020
  Receipt Date: 20211020
  Transmission Date: 20220303
  Serious: Yes (Hospitalization, Other)
  Sender: FDA-Public Use
  Company Number: PL-MLMSERVICE-20210609-2937453-1

PATIENT
  Age: 37 Year
  Sex: Male

DRUGS (4)
  1. MYCOPHENOLATE MOFETIL [Suspect]
     Active Substance: MYCOPHENOLATE MOFETIL
     Indication: Immunosuppressant drug therapy
     Dosage: START DATE: UNKNOWN DATE IN 2016
     Route: 065
  2. ENVARSUS XR [Suspect]
     Active Substance: TACROLIMUS
     Indication: Immunosuppressant drug therapy
     Dosage: START DATE: UNKNOWN DATE IN 2016
     Route: 065
  3. PREDNISONE [Suspect]
     Active Substance: PREDNISONE
     Indication: Immunosuppressant drug therapy
     Dosage: START DATE: UNKNOWN DATE IN 2016
     Route: 065
  4. PROGRAF [Suspect]
     Active Substance: TACROLIMUS
     Indication: Immunosuppressant drug therapy
     Dosage: UNK

REACTIONS (11)
  - Haemochromatosis [Recovered/Resolved]
  - Transplant dysfunction [Recovered/Resolved]
  - Left ventricular hypertrophy [Recovered/Resolved]
  - Glucose tolerance impaired [Recovered/Resolved]
  - Hepatic steatosis [Recovered/Resolved]
  - Liver injury [Recovered/Resolved]
  - Cardiac failure [Recovered/Resolved]
  - Enterococcal infection [Recovered/Resolved]
  - Anaemia [Recovered/Resolved]
  - Urinary tract infection [Recovered/Resolved]
  - Cytomegalovirus infection [Recovered/Resolved]

NARRATIVE: CASE EVENT DATE: 20161001
